FAERS Safety Report 6184727-X (Version None)
Quarter: 2009Q2

REPORT INFORMATION
  Report Type: 
  Country: None (occurrence: None)
  Receive Date: 20090508
  Receipt Date: 20090501
  Transmission Date: 20091009
  Serious: Yes (Hospitalization)
  Sender: FDA-Public Use
  Company Number: FR-GENENTECH-278983

PATIENT
  Sex: Female

DRUGS (2)
  1. BEVACIZUMAB [Suspect]
     Indication: BREAST CANCER METASTATIC
     Dosage: 590 MG, UNK
     Route: 042
     Dates: start: 20071008
  2. IXABEPILONE [Suspect]
     Indication: BREAST CANCER METASTATIC
     Dosage: 189 MG, UNK
     Route: 042
     Dates: start: 20071008, end: 20080602

REACTIONS (1)
  - PYREXIA [None]
